FAERS Safety Report 20383465 (Version 2)
Quarter: 2022Q2

REPORT INFORMATION
  Report Type: Spontaneous
  Country: US (occurrence: US)
  Receive Date: 20220127
  Receipt Date: 20220419
  Transmission Date: 20220721
  Serious: No
  Sender: FDA-Public Use
  Company Number: US-NOVARTISTESTPH-NVSC2022US015946

PATIENT
  Age: 8 Year
  Sex: Male

DRUGS (1)
  1. ILARIS [Suspect]
     Active Substance: CANAKINUMAB
     Indication: Inflammatory bowel disease
     Dosage: 75 MG, INSTEAD OF 150 MG AND WE ARE HOPING TO GIVE THE REMAINING PORTION HIS DOSE TOMORROW, TUESDAY
     Route: 065
     Dates: start: 20220121

REACTIONS (1)
  - Incorrect dose administered [Unknown]
